FAERS Safety Report 21963091 (Version 1)
Quarter: 2023Q1

REPORT INFORMATION
  Report Type: Spontaneous
  Country: US (occurrence: None)
  Receive Date: 20230205
  Receipt Date: 20230205
  Transmission Date: 20230418
  Serious: No
  Sender: FDA-Public Use
  Company Number: None

PATIENT
  Age: 59 Year
  Sex: Female
  Weight: 87.75 kg

DRUGS (7)
  1. TIROSINT-SOL [Suspect]
     Active Substance: LEVOTHYROXINE SODIUM
     Indication: Thyroidectomy
     Dosage: ?OTHER STRENGTH : MICROGRAM/ML
     Route: 048
     Dates: start: 20221206
  2. TIROSINT-SOL [Suspect]
     Active Substance: LEVOTHYROXINE SODIUM
     Indication: Thyroidectomy
     Dosage: 1 AMPULES ORAL?
     Route: 048
     Dates: start: 20230105
  3. MULTI [Concomitant]
  4. ZINC [Concomitant]
     Active Substance: ZINC
  5. IRON [Concomitant]
     Active Substance: IRON
  6. CALCIUM [Concomitant]
     Active Substance: CALCIUM
  7. MAGNESIUM [Concomitant]
     Active Substance: MAGNESIUM

REACTIONS (6)
  - Product taste abnormal [None]
  - Recalled product administered [None]
  - Head titubation [None]
  - Weight increased [None]
  - Feeling cold [None]
  - COVID-19 immunisation [None]

NARRATIVE: CASE EVENT DATE: 20230105
